FAERS Safety Report 5288144-6 (Version None)
Quarter: 2007Q2

REPORT INFORMATION
  Report Type: 
  Country: None (occurrence: None)
  Receive Date: 20070405
  Receipt Date: 20070322
  Transmission Date: 20071010
  Serious: Yes (Other)
  Sender: FDA-Public Use
  Company Number: PHEH2007US03445

PATIENT
  Age: 72 Year
  Sex: Male

DRUGS (1)
  1. ZOMETA [Suspect]
     Indication: METASTASES TO BONE
     Dates: start: 20070201

REACTIONS (8)
  - AMNESIA [None]
  - ASTHENIA [None]
  - BONE PAIN [None]
  - DRY MOUTH [None]
  - DRY THROAT [None]
  - INFLUENZA LIKE ILLNESS [None]
  - MYALGIA [None]
  - VISION BLURRED [None]
